FAERS Safety Report 14586677 (Version 1)
Quarter: 2018Q1

REPORT INFORMATION
  Report Type: Spontaneous
  Country: ES (occurrence: ES)
  Receive Date: 20180301
  Receipt Date: 20180301
  Transmission Date: 20180509
  Serious: Yes (Other)
  Sender: FDA-Public Use
  Company Number: ES-AUROBINDO-AUR-APL-2018-010050

PATIENT
  Age: 28 Year
  Sex: Female
  Weight: 53 kg

DRUGS (3)
  1. CLARITHROMYCIN. [Suspect]
     Active Substance: CLARITHROMYCIN
     Indication: HELICOBACTER INFECTION
     Dosage: 500MG CADA 12 HORAS DURANTE 3 D?AS
     Route: 048
     Dates: start: 20180123
  2. OMEPRAZOLE. [Suspect]
     Active Substance: OMEPRAZOLE
     Indication: HELICOBACTER INFECTION
     Dosage: UNK
     Route: 065
     Dates: start: 201801
  3. AMOXICILINA                        /00249602/ [Suspect]
     Active Substance: AMOXICILLIN
     Indication: HELICOBACTER INFECTION
     Dosage: UNK
     Dates: start: 201801

REACTIONS (6)
  - Paraesthesia [Unknown]
  - Affect lability [Unknown]
  - Flatulence [Unknown]
  - Feeling hot [Unknown]
  - Anxiety [Unknown]
  - Ageusia [Unknown]

NARRATIVE: CASE EVENT DATE: 20180123
